FAERS Safety Report 14646935 (Version 1)
Quarter: 2018Q1

REPORT INFORMATION
  Report Type: Spontaneous
  Country: FR (occurrence: FR)
  Receive Date: 20180316
  Receipt Date: 20180316
  Transmission Date: 20180509
  Serious: Yes (Other)
  Sender: FDA-Public Use
  Company Number: PHHY2018FR041453

PATIENT
  Age: 42 Year
  Sex: Female
  Weight: 55 kg

DRUGS (2)
  1. CARBOPLATINE [Suspect]
     Active Substance: CARBOPLATIN
     Indication: OVARIAN CANCER
     Dosage: 470 MG, UNK
     Route: 042
  2. PACLITAXEL. [Suspect]
     Active Substance: PACLITAXEL
     Indication: OVARIAN CANCER
     Dosage: 280 MG, UNK
     Route: 042

REACTIONS (1)
  - Distal intestinal obstruction syndrome [Recovered/Resolved]

NARRATIVE: CASE EVENT DATE: 20170607
